FAERS Safety Report 10010149 (Version 1)
Quarter: 2014Q1

REPORT INFORMATION
  Report Type: Spontaneous
  Country: US (occurrence: US)
  Receive Date: 20140312
  Receipt Date: 20140312
  Transmission Date: 20141002
  Serious: No
  Sender: FDA-Public Use
  Company Number: US-INCYTE CORPORATION-2013IN001510

PATIENT
  Sex: Male

DRUGS (1)
  1. JAKAFI [Suspect]
     Dosage: UNSPECIFIED

REACTIONS (2)
  - Platelet count increased [Unknown]
  - Contusion [Unknown]
